FAERS Safety Report 9107964 (Version 2)
Quarter: 2013Q1

REPORT INFORMATION
  Report Type: Spontaneous
  Country: JP (occurrence: JP)
  Receive Date: 20130221
  Receipt Date: 20130301
  Transmission Date: 20140127
  Serious: Yes (Hospitalization)
  Sender: FDA-Public Use
  Company Number: JP-PFIZER INC-2013064032

PATIENT
  Age: 72 Year
  Sex: Female

DRUGS (2)
  1. JZOLOFT [Suspect]
     Dosage: 25 MG, 1X/DAY
     Route: 048
     Dates: start: 20130128
  2. ROHYPNOL [Suspect]
     Dosage: 1 MG, 1X/DAY
     Route: 048
     Dates: start: 201301

REACTIONS (2)
  - Shock [Unknown]
  - Blood pressure decreased [Unknown]
